FAERS Safety Report 6091359-0 (Version None)
Quarter: 2009Q1

REPORT INFORMATION
  Report Type: 
  Country: None (occurrence: None)
  Receive Date: 20090219
  Receipt Date: 20090219
  Transmission Date: 20090719
  Serious: Yes (Other)
  Sender: FDA-Public Use
  Company Number: None

PATIENT
  Sex: Male
  Weight: 99.7913 kg

DRUGS (5)
  1. CITALOPRAM HYDROBROMIDE [Suspect]
     Indication: ABDOMINAL PAIN
     Dosage: 10 MG. QD PO
     Route: 048
     Dates: start: 20090207
  2. CITALOPRAM HYDROBROMIDE [Suspect]
     Indication: ABDOMINAL PAIN
     Dosage: 10 MG. QD PO
     Route: 048
     Dates: start: 20090208
  3. CITALOPRAM HYDROBROMIDE [Suspect]
     Indication: ABDOMINAL PAIN
     Dosage: 10 MG. QD PO
     Route: 048
     Dates: start: 20090209
  4. CITALOPRAM HYDROBROMIDE [Suspect]
     Indication: ABDOMINAL PAIN
     Dosage: 10 MG. QD PO
     Route: 048
     Dates: start: 20090210
  5. CITALOPRAM HYDROBROMIDE [Suspect]
     Indication: ABDOMINAL PAIN
     Dosage: 10 MG. QD PO
     Route: 048
     Dates: start: 20090212

REACTIONS (3)
  - DEHYDRATION [None]
  - POSTURAL ORTHOSTATIC TACHYCARDIA SYNDROME [None]
  - SYNCOPE [None]
